FAERS Safety Report 8052795-6 (Version None)
Quarter: 2012Q1

REPORT INFORMATION
  Report Type: 
  Country: None (occurrence: None)
  Receive Date: 20120118
  Receipt Date: 20120113
  Transmission Date: 20120608
  Serious: Yes (Death)
  Sender: FDA-Public Use
  Company Number: PHHY2012BR003405

PATIENT
  Age: 82 Year
  Sex: Male

DRUGS (1)
  1. EXELON [Suspect]
     Indication: DEMENTIA ALZHEIMER'S TYPE
     Dosage: 2 DF, DAILY
     Route: 048

REACTIONS (3)
  - DEATH [None]
  - SOMNOLENCE [None]
  - EYE DISORDER [None]
